FAERS Safety Report 10160036 (Version 2)
Quarter: 2014Q2

REPORT INFORMATION
  Report Type: Spontaneous
  Country: US (occurrence: US)
  Receive Date: 20140508
  Receipt Date: 20140521
  Transmission Date: 20141212
  Serious: No
  Sender: FDA-Public Use
  Company Number: US-009507513-1405USA000542

PATIENT
  Age: 84 Year
  Sex: Female
  Weight: 78.91 kg

DRUGS (1)
  1. OXYTROL FOR WOMEN [Suspect]
     Indication: URINARY INCONTINENCE
     Dosage: UNK, UNKNOWN
     Route: 062
     Dates: start: 20140411, end: 20140412

REACTIONS (2)
  - Diplopia [Recovered/Resolved]
  - Dizziness [Recovered/Resolved]
